FAERS Safety Report 12144708 (Version 1)
Quarter: 2016Q1

REPORT INFORMATION
  Report Type: Spontaneous
  Country: US (occurrence: None)
  Receive Date: 20160303
  Receipt Date: 20160303
  Transmission Date: 20160526
  Serious: No
  Sender: FDA-Public Use
  Company Number: None

PATIENT
  Age: 77 Year
  Sex: Female
  Weight: 68.9 kg

DRUGS (1)
  1. NEUPOGEN [Suspect]
     Active Substance: FILGRASTIM
     Indication: NEUTROPENIA
     Dosage: 300 MCG ONCE (2/23, 2/27) SUBCUTANEOUS
     Route: 058
     Dates: start: 20160223, end: 20160227

REACTIONS (1)
  - Urticaria [None]

NARRATIVE: CASE EVENT DATE: 20160223
